FAERS Safety Report 15482100 (Version 1)
Quarter: 2018Q4

REPORT INFORMATION
  Report Type: Spontaneous
  Country: FR (occurrence: FR)
  Receive Date: 20181010
  Receipt Date: 20181010
  Transmission Date: 20190205
  Serious: Yes (Hospitalization)
  Sender: FDA-Public Use
  Company Number: FR-JNJFOC-20181007245

PATIENT
  Age: 62 Year
  Sex: Female
  Weight: 49 kg

DRUGS (1)
  1. YONDELIS [Suspect]
     Active Substance: TRABECTEDIN
     Indication: UTERINE LEIOMYOSARCOMA
     Route: 042
     Dates: start: 20180228, end: 20180523

REACTIONS (2)
  - Cardiac failure [Recovered/Resolved with Sequelae]
  - Condition aggravated [Unknown]

NARRATIVE: CASE EVENT DATE: 201802
